FAERS Safety Report 22350434 (Version 1)
Quarter: 2023Q2

REPORT INFORMATION
  Report Type: Spontaneous
  Country: KR (occurrence: KR)
  Receive Date: 20230522
  Receipt Date: 20230522
  Transmission Date: 20230722
  Serious: Yes (Hospitalization)
  Sender: FDA-Public Use
  Company Number: KR-MYLANLABS-2023M1051567

PATIENT
  Age: 55 Year
  Sex: Female
  Weight: 51.7 kg

DRUGS (3)
  1. CELEBREX [Suspect]
     Active Substance: CELECOXIB
     Indication: Still^s disease
     Dosage: 200 MILLIGRAM, BID
     Route: 065
     Dates: start: 20180713, end: 20180716
  2. ENTECAVIR [Suspect]
     Active Substance: ENTECAVIR
     Indication: Prophylaxis
     Dosage: 0.5 MILLIGRAM, BID
     Route: 048
     Dates: start: 20180713, end: 20180716
  3. AZATHIOPRINE [Suspect]
     Active Substance: AZATHIOPRINE
     Indication: Still^s disease
     Dosage: 50 MILLIGRAM, QD
     Route: 048
     Dates: start: 20180713, end: 20180716

REACTIONS (2)
  - Rash [Recovered/Resolved]
  - Off label use [Unknown]

NARRATIVE: CASE EVENT DATE: 20180713
